FAERS Safety Report 13686800 (Version 1)
Quarter: 2017Q2

REPORT INFORMATION
  Report Type: Report from Study
  Country: US (occurrence: US)
  Receive Date: 20170623
  Receipt Date: 20170623
  Transmission Date: 20170830
  Serious: Yes (Death, Life-Threatening)
  Sender: FDA-Public Use
  Company Number: US-ASTRAZENECA-2017SE64838

PATIENT
  Age: 18 Year
  Sex: Male

DRUGS (16)
  1. AZD2281 [Suspect]
     Active Substance: OLAPARIB
     Indication: EWING^S SARCOMA
     Route: 048
     Dates: start: 20161014
  2. SODIUM BICARBONATE. [Concomitant]
     Active Substance: SODIUM BICARBONATE
  3. SODIUM CHLORIDE. [Concomitant]
     Active Substance: SODIUM CHLORIDE
  4. TEMOZOLOMIDE. [Suspect]
     Active Substance: TEMOZOLOMIDE
     Indication: EWING^S SARCOMA
     Route: 048
     Dates: start: 20161014
  5. CEFIXIME. [Concomitant]
     Active Substance: CEFIXIME
  6. DIPHENHYDRAMINE. [Concomitant]
     Active Substance: DIPHENHYDRAMINE
  7. DOCUSATE [Concomitant]
     Active Substance: DOCUSATE
  8. LORAZEPAM. [Concomitant]
     Active Substance: LORAZEPAM
  9. MIRTAZAPINE. [Concomitant]
     Active Substance: MIRTAZAPINE
  10. POLYETHYLENE GLYCOL 3350. [Concomitant]
     Active Substance: POLYETHYLENE GLYCOL 3350
  11. SEPTRA [Concomitant]
     Active Substance: SULFAMETHOXAZOLE\TRIMETHOPRIM
  12. HYDROMORPHONE [Concomitant]
     Active Substance: HYDROMORPHONE
  13. ONDANSETRON [Concomitant]
     Active Substance: ONDANSETRON
  14. RANITIDINE. [Concomitant]
     Active Substance: RANITIDINE
  15. IRINOTECAN [Suspect]
     Active Substance: IRINOTECAN
     Indication: EWING^S SARCOMA
     Route: 042
     Dates: start: 20161014
  16. LIDOCAINE. [Concomitant]
     Active Substance: LIDOCAINE

REACTIONS (4)
  - Leukopenia [Fatal]
  - Neutropenia [Recovered/Resolved]
  - Thrombocytopenia [Recovered/Resolved]
  - Lymphopenia [Recovered/Resolved]

NARRATIVE: CASE EVENT DATE: 20161020
